FAERS Safety Report 19700291 (Version 1)
Quarter: 2021Q3

REPORT INFORMATION
  Report Type: Spontaneous
  Country: AU (occurrence: AU)
  Receive Date: 20210813
  Receipt Date: 20210813
  Transmission Date: 20211014
  Serious: Yes (Other)
  Sender: FDA-Public Use
  Company Number: AU-LUPIN PHARMACEUTICALS INC.-2021-14621

PATIENT
  Age: 75 Year
  Sex: Male

DRUGS (12)
  1. PREDNISOLONE. [Suspect]
     Active Substance: PREDNISOLONE
     Dosage: 75 MILLIGRAM, QD,STARTED ON DAY 100
     Route: 048
  2. PREDNISOLONE. [Suspect]
     Active Substance: PREDNISOLONE
     Dosage: 60 MILLIGRAM, QD,STARTED ON DAY 107
     Route: 048
  3. PREDNISOLONE. [Suspect]
     Active Substance: PREDNISOLONE
     Indication: DRUG-INDUCED LIVER INJURY
     Dosage: 100 MILLIGRAM, QD,WITH WEEKLY TAPER
     Route: 048
  4. MYCOPHENOLATE [Concomitant]
     Active Substance: MYCOPHENOLIC ACID
     Dosage: 1 GRAM, BID,STARTED ON DAY 99
     Route: 065
  5. METHYLPREDNISOLONE. [Suspect]
     Active Substance: METHYLPREDNISOLONE
     Indication: DRUG-INDUCED LIVER INJURY
     Dosage: 180 MILLIGRAM, QD
     Route: 042
  6. NIVOLUMAB [Concomitant]
     Active Substance: NIVOLUMAB
     Indication: METASTATIC MALIGNANT MELANOMA
     Dosage: 1 MILLIGRAM/KILOGRAM,DOSE: 88MG, 3 WEEKS
     Route: 042
  7. PREDNISOLONE. [Suspect]
     Active Substance: PREDNISOLONE
     Dosage: 37.5 MILLIGRAM, QD
     Route: 048
  8. IPILIMUMAB [Concomitant]
     Active Substance: IPILIMUMAB
     Indication: METASTATIC MALIGNANT MELANOMA
     Dosage: 3 MILLIGRAM/KILOGRAM,DOSE: 264MG, 3 WEEKS
     Route: 042
  9. MYCOPHENOLATE [Concomitant]
     Active Substance: MYCOPHENOLIC ACID
     Dosage: 2 GRAM, BID,STARTED ON DAY 111
     Route: 065
  10. PREDNISOLONE. [Suspect]
     Active Substance: PREDNISOLONE
     Dosage: 200 MILLIGRAM, QD,STARTED ON DAY 92
     Route: 048
  11. PREDNISOLONE. [Suspect]
     Active Substance: PREDNISOLONE
     Dosage: 50 MILLIGRAM, QD,STARTED ON DAY 114
     Route: 048
  12. MYCOPHENOLATE [Concomitant]
     Active Substance: MYCOPHENOLIC ACID
     Indication: DRUG-INDUCED LIVER INJURY
     Dosage: 500 MILLIGRAM, BID,STARTED ON DAY 94
     Route: 065

REACTIONS (1)
  - Therapy non-responder [Unknown]
